FAERS Safety Report 4497386-9 (Version None)
Quarter: 2004Q4

REPORT INFORMATION
  Report Type: 
  Country: None (occurrence: None)
  Receive Date: 20041110
  Receipt Date: 20041101
  Transmission Date: 20050328
  Serious: Yes (Other)
  Sender: FDA-Public Use
  Company Number: 200413304EU

PATIENT
  Age: 67 Year
  Sex: Female

DRUGS (1)
  1. CALCITONIN-SALMON NASAL SPRAY [Suspect]
     Route: 055

REACTIONS (2)
  - NASAL CONGESTION [None]
  - SNEEZING [None]
